FAERS Safety Report 19998772 (Version 2)
Quarter: 2021Q4

REPORT INFORMATION
  Report Type: Spontaneous
  Country: US (occurrence: US)
  Receive Date: 20211026
  Receipt Date: 20211102
  Transmission Date: 20220303
  Serious: Yes (Other)
  Sender: FDA-Public Use
  Company Number: US-ELI_LILLY_AND_COMPANY-US202110009284

PATIENT
  Sex: Female

DRUGS (7)
  1. FORTEO [Suspect]
     Active Substance: TERIPARATIDE
     Indication: Osteoporosis
     Dosage: UNK, UNKNOWN
     Route: 065
     Dates: start: 2005, end: 2007
  2. FORTEO [Suspect]
     Active Substance: TERIPARATIDE
     Indication: Osteoporosis
     Dosage: UNK, UNKNOWN
     Route: 065
     Dates: start: 2005, end: 2007
  3. FORTEO [Suspect]
     Active Substance: TERIPARATIDE
     Indication: Fracture
  4. FORTEO [Suspect]
     Active Substance: TERIPARATIDE
     Indication: Fracture
  5. PROLIA [Concomitant]
     Active Substance: DENOSUMAB
     Indication: Osteoporosis
     Dosage: UNK, UNKNOWN
     Route: 065
  6. CALCIUM [Concomitant]
     Active Substance: CALCIUM
     Indication: Osteoporosis
  7. VITAMIN D NOS [Concomitant]
     Active Substance: VITAMIN D NOS
     Indication: Osteoporosis

REACTIONS (8)
  - Pelvic fracture [Unknown]
  - Fall [Recovered/Resolved]
  - Compression fracture [Unknown]
  - Bone density decreased [Unknown]
  - Back injury [Unknown]
  - Mobility decreased [Unknown]
  - Infection [Unknown]
  - Immune system disorder [Unknown]

NARRATIVE: CASE EVENT DATE: 20130101
